FAERS Safety Report 26176520 (Version 1)
Quarter: 2025Q4

REPORT INFORMATION
  Report Type: Spontaneous
  Country: CN (occurrence: CN)
  Receive Date: 20251218
  Receipt Date: 20251218
  Transmission Date: 20260117
  Serious: Yes (Hospitalization, Other)
  Sender: ELI LILLY AND COMPANY
  Company Number: CN-ELI_LILLY_AND_COMPANY-CN202512020539

PATIENT
  Age: 74 Year
  Sex: Male

DRUGS (3)
  1. PEMETREXED [Suspect]
     Active Substance: PEMETREXED
     Indication: Neoplasm
     Dosage: 800 MG, SINGLE (EVERY 21 DAYS)
     Route: 041
     Dates: start: 20251112, end: 20251112
  2. SUGEMALIMAB [Concomitant]
     Active Substance: SUGEMALIMAB
     Indication: Product used for unknown indication
     Dosage: UNK
     Dates: start: 20251112
  3. TPIAO [Concomitant]
     Indication: Platelet count decreased

REACTIONS (2)
  - Haemoglobin decreased [Recovering/Resolving]
  - Platelet count decreased [Recovering/Resolving]

NARRATIVE: CASE EVENT DATE: 20251124
